FAERS Safety Report 4448878-X (Version None)
Quarter: 2004Q3

REPORT INFORMATION
  Report Type: 
  Country: None (occurrence: None)
  Receive Date: 20040909
  Receipt Date: 20040820
  Transmission Date: 20050211
  Serious: Yes (Other)
  Sender: FDA-Public Use
  Company Number: 2004231181US

PATIENT
  Sex: Male

DRUGS (1)
  1. CELEBREX [Suspect]
     Dosage: SEE IMAGE
     Dates: start: 20010101

REACTIONS (2)
  - CARDIAC DISORDER [None]
  - CHEST PAIN [None]
